FAERS Safety Report 17847937 (Version 2)
Quarter: 2020Q3

REPORT INFORMATION
  Report Type: Spontaneous
  Country: US (occurrence: US)
  Receive Date: 20200601
  Receipt Date: 20200708
  Transmission Date: 20201103
  Serious: Yes (Other)
  Sender: FDA-Public Use
  Company Number: US-NOVOPROD-730544

PATIENT
  Age: 32 Year
  Sex: Female
  Weight: 66.2 kg

DRUGS (5)
  1. SAXENDA [Suspect]
     Active Substance: LIRAGLUTIDE
     Dosage: 1.2 MG, QD
     Route: 058
     Dates: start: 2020, end: 2020
  2. SAXENDA [Suspect]
     Active Substance: LIRAGLUTIDE
     Dosage: 2.4 MG, QD
     Route: 058
     Dates: start: 2020, end: 2020
  3. SAXENDA [Suspect]
     Active Substance: LIRAGLUTIDE
     Dosage: 1.8 MG, QD
     Route: 058
     Dates: start: 2020, end: 2020
  4. SAXENDA [Suspect]
     Active Substance: LIRAGLUTIDE
     Indication: OBESITY
     Dosage: 0.6 MG, QD
     Route: 058
     Dates: start: 20200220, end: 2020
  5. SAXENDA [Suspect]
     Active Substance: LIRAGLUTIDE
     Dosage: 3.0 MG, QD
     Route: 058
     Dates: start: 2020

REACTIONS (1)
  - Endometrial disorder [Not Recovered/Not Resolved]

NARRATIVE: CASE EVENT DATE: 20200504
